FAERS Safety Report 5376256-8 (Version None)
Quarter: 2007Q3

REPORT INFORMATION
  Report Type: 
  Country: None (occurrence: None)
  Receive Date: 20070702
  Receipt Date: 20070622
  Transmission Date: 20080115
  Serious: Yes (Hospitalization)
  Sender: FDA-Public Use
  Company Number: AU-ROCHE-499609

PATIENT
  Age: 19 Year
  Sex: Female
  Weight: 50 kg

DRUGS (7)
  1. CAPECITABINE [Suspect]
     Dosage: GIVEN FROM THE EVENING OF DAY ONE UNTIL THE MORNING OF DAY FIFTEEN, FOLLOWED BY ONE WEEK REST.
     Route: 048
     Dates: start: 20070402
  2. CAPECITABINE [Suspect]
     Dosage: GIVEN FROM THE EVENING OF DAY ONE UNTIL THE MORNING OF DAY FIFTEEN, FOLLOWED BY ONE WEEK REST.
     Route: 048
     Dates: start: 20070612
  3. BEVACIZUMAB [Suspect]
     Dosage: DOSAGE FORM REPORTED AS INFUSION. GIVEN ON DAY ONE OF EACH THREE-WEEK-CYCLE.
     Route: 042
     Dates: start: 20070402
  4. OXALIPLATIN [Suspect]
     Dosage: DOSAGE FORM REPORTED AS INFUSION. GIVEN ON DAY ONE OF EACH THREE-WEEK-CYCLE.
     Route: 042
     Dates: start: 20070402
  5. OXALIPLATIN [Suspect]
     Dosage: GIVEN ON DAY ONE OF EACH THREE-WEEK-CYCLE.
     Route: 042
     Dates: start: 20070612
  6. NAVOBAN [Concomitant]
     Dates: start: 20070402
  7. DEXAMETHASONE 0.5MG TAB [Concomitant]
     Dates: start: 20070402

REACTIONS (2)
  - COLITIS [None]
  - NEUTROPHIL COUNT DECREASED [None]
